FAERS Safety Report 21816595 (Version 1)
Quarter: 2023Q1

REPORT INFORMATION
  Report Type: Spontaneous
  Country: US (occurrence: None)
  Receive Date: 20230104
  Receipt Date: 20230104
  Transmission Date: 20230417
  Serious: Yes (Death)
  Sender: FDA-Public Use
  Company Number: None

PATIENT
  Age: 83 Year
  Sex: Male
  Weight: 48.49 kg

DRUGS (27)
  1. CAPECITABINE [Suspect]
     Active Substance: CAPECITABINE
     Indication: Neoplasm malignant
     Dosage: FREQUENCY : TWICE A DAY;?
     Route: 048
  2. ALENDRONATE [Concomitant]
  3. CALCIUM + VITAMIN D3 [Concomitant]
  4. ENALAPRIL [Concomitant]
  5. FINASTERIDE [Concomitant]
  6. METOPROLOL [Concomitant]
  7. VITAMINS [Concomitant]
     Active Substance: VITAMINS
  8. NIFEDIPINE ER [Concomitant]
  9. PANTOPRAZOLE [Concomitant]
  10. PROTONIX [Concomitant]
  11. TAMSULOSIN [Concomitant]
  12. TYLENOL [Concomitant]
  13. VASCEPA [Concomitant]
  14. ZOFRAN [Concomitant]
  15. ALENDRONATE [Concomitant]
  16. CALCIUM + VITAMIN D3 [Concomitant]
  17. ENALAPRIL [Concomitant]
  18. FINASTERIDE [Concomitant]
  19. METOPROLOL TARTRATE [Concomitant]
     Active Substance: METOPROLOL TARTRATE
  20. MULTIVITAMIN [Concomitant]
  21. NIFEDIPINE ER [Concomitant]
  22. PANTOPRAZOLE [Concomitant]
  23. PROTONIX [Concomitant]
  24. TAMSULOSIN [Concomitant]
  25. TYLENOL [Concomitant]
  26. VASCEPA [Concomitant]
  27. ZOFRAN [Concomitant]

REACTIONS (1)
  - Death [None]

NARRATIVE: CASE EVENT DATE: 20221211
